FAERS Safety Report 9523770 (Version 1)
Quarter: 2013Q3

REPORT INFORMATION
  Report Type: Spontaneous
  Country: US (occurrence: None)
  Receive Date: 20130912
  Receipt Date: 20130912
  Transmission Date: 20140515
  Serious: Yes (Other)
  Sender: FDA-Public Use
  Company Number: 001109225A

PATIENT
  Sex: Female

DRUGS (1)
  1. RECLAIM ANTI-AGING DAY CREAM SPF 15 % [Suspect]
     Dosage: DERMAL
     Dates: start: 20120126

REACTIONS (2)
  - Asthma [None]
  - Product formulation issue [None]
